FAERS Safety Report 7531084-X (Version None)
Quarter: 2011Q2

REPORT INFORMATION
  Report Type: 
  Country: None (occurrence: None)
  Receive Date: 20110526
  Receipt Date: 20110516
  Transmission Date: 20111010
  Serious: Yes (Hospitalization)
  Sender: FDA-Public Use
  Company Number: DSA_46731_2011

PATIENT
  Age: 66 Year
  Sex: Male

DRUGS (2)
  1. ENALAPRIL MALEATE [Suspect]
     Indication: ESSENTIAL HYPERTENSION
     Dosage: (10 MG QD ORAL)
     Route: 048
     Dates: start: 20080101, end: 20110225
  2. AMOXICILLIN [Suspect]
     Indication: UPPER RESPIRATORY TRACT INFECTION
     Dosage: (DF ORAL)
     Route: 048
     Dates: start: 20110208, end: 20110217

REACTIONS (8)
  - COUGH [None]
  - OEDEMA PERIPHERAL [None]
  - DRUG ERUPTION [None]
  - DIARRHOEA [None]
  - NASOPHARYNGITIS [None]
  - PYREXIA [None]
  - MALAISE [None]
  - RASH ERYTHEMATOUS [None]
